FAERS Safety Report 9535999 (Version 2)
Quarter: 2013Q3

REPORT INFORMATION
  Report Type: Spontaneous
  Country: US (occurrence: US)
  Receive Date: 20130919
  Receipt Date: 20130920
  Transmission Date: 20140515
  Serious: No
  Sender: FDA-Public Use
  Company Number: US-PFIZER INC-2013264549

PATIENT
  Age: 59 Year
  Sex: Male

DRUGS (9)
  1. PROTONIX [Suspect]
     Dosage: 40 MG, 1X/DAY (1 TAB ORALLY ONCE A DAY)
     Route: 048
  2. GEMFIBROZIL [Suspect]
     Dosage: 600 MG, 2X/DAY (WITH BREAKFAST AND SUPPER)
     Route: 048
  3. TERBINAFINE [Suspect]
     Dosage: 250 MG, 1X/DAY
     Route: 048
  4. HYDROCHLOROTHIAZIDE [Suspect]
     Dosage: 12.5 MG, 1X/DAY
     Route: 048
  5. LISINOPRIL [Suspect]
     Dosage: 20 MG, 1X/DAY
     Route: 048
  6. METFORMIN HCL [Suspect]
     Dosage: 500 MG, 2X/DAY
     Route: 048
  7. PRAVACHOL [Suspect]
     Dosage: 80 MG, 1X/DAY (AT BEDTIME)
     Route: 048
  8. ASA [Suspect]
     Dosage: 325 MG, 1X/DAY (1 EVERY MORNING)
  9. PLAVIX [Suspect]
     Dosage: 75 MG, 1X/DAY
     Route: 048

REACTIONS (1)
  - Erectile dysfunction [Unknown]
